FAERS Safety Report 9628676 (Version 1)
Quarter: 2013Q4

REPORT INFORMATION
  Report Type: Spontaneous
  Country: FR (occurrence: FR)
  Receive Date: 20131017
  Receipt Date: 20131017
  Transmission Date: 20140711
  Serious: Yes (Hospitalization)
  Sender: FDA-Public Use
  Company Number: FR-SA-2013SA101078

PATIENT
  Age: 82 Year
  Sex: Male

DRUGS (8)
  1. PLAVIX [Suspect]
     Indication: MYOCARDIAL INFARCTION
     Route: 048
     Dates: start: 201305
  2. KARDEGIC [Suspect]
     Indication: MYOCARDIAL INFARCTION
     Route: 048
     Dates: start: 201305
  3. PREVISCAN [Suspect]
     Indication: MYOCARDIAL INFARCTION
     Route: 048
     Dates: start: 201305
  4. BISOCE [Concomitant]
     Dosage: STRENGTH: 2.5 MG
     Route: 048
  5. TRIATEC [Concomitant]
     Dosage: STRENGTH: 1.25 MG
     Route: 048
  6. LASILIX [Concomitant]
     Route: 048
  7. DIFFU K [Concomitant]
     Route: 048
  8. INSPRA [Concomitant]
     Route: 048

REACTIONS (5)
  - Cardiac failure [Unknown]
  - Cardiac failure [Unknown]
  - Gastrointestinal haemorrhage [Unknown]
  - Melaena [Unknown]
  - Iron deficiency anaemia [Unknown]
